FAERS Safety Report 12729771 (Version 1)
Quarter: 2016Q3

REPORT INFORMATION
  Report Type: Report from Study
  Country: CN (occurrence: CN)
  Receive Date: 20160909
  Receipt Date: 20160909
  Transmission Date: 20161109
  Serious: Yes (Death, Hospitalization)
  Sender: FDA-Public Use
  Company Number: CN-BAYER-2015-395837

PATIENT
  Age: 82 Year

DRUGS (1)
  1. SORAFENIB [Suspect]
     Active Substance: SORAFENIB
     Indication: METASTATIC RENAL CELL CARCINOMA

REACTIONS (6)
  - Arrhythmia [Recovering/Resolving]
  - Multiple organ dysfunction syndrome [Fatal]
  - Acute coronary syndrome [Recovering/Resolving]
  - Metastatic renal cell carcinoma [Fatal]
  - Coronary artery disease [Recovering/Resolving]
  - Atrioventricular block second degree [Recovering/Resolving]

NARRATIVE: CASE EVENT DATE: 20130725
